FAERS Safety Report 5288997-1 (Version None)
Quarter: 2007Q1

REPORT INFORMATION
  Report Type: 
  Country: None (occurrence: None)
  Receive Date: 20070118
  Receipt Date: 20061010
  Transmission Date: 20070707
  Serious: Yes (Other)
  Sender: FDA-Public Use
  Company Number: HQWYE013413OCT06

PATIENT
  Age: 73 Year
  Sex: Female
  Weight: 78.09 kg

DRUGS (3)
  1. ADVIL PM [Suspect]
     Indication: INSOMNIA
     Dosage: 1 CAPSULE 1X PER 1 DAY, ORAL
     Route: 048
     Dates: start: 20061006, end: 20061006
  2. ADVIL PM [Suspect]
     Indication: PAIN
     Dosage: 1 CAPSULE 1X PER 1 DAY, ORAL
     Route: 048
     Dates: start: 20061006, end: 20061006
  3. ZOCOR [Concomitant]

REACTIONS (1)
  - DRUG INEFFECTIVE [None]
